FAERS Safety Report 9304808 (Version 1)
Quarter: 2013Q2

REPORT INFORMATION
  Report Type: Spontaneous
  Country: US (occurrence: None)
  Receive Date: 20130521
  Receipt Date: 20130521
  Transmission Date: 20140414
  Serious: No
  Sender: FDA-Public Use
  Company Number: None

PATIENT
  Age: 25 Year
  Sex: Female
  Weight: 94.8 kg

DRUGS (2)
  1. FENTANYL CITRATE [Suspect]
     Dosage: EPIDURAL; IVP
     Dates: start: 20130423, end: 20130423
  2. MARCAINE SPINAL [Suspect]
     Dosage: EPIDURAL (0.75%PER2ML)

REACTIONS (4)
  - Loss of consciousness [None]
  - Hypotension [None]
  - Bradycardia [None]
  - Apnoea [None]
